FAERS Safety Report 6163929-2 (Version None)
Quarter: 2009Q2

REPORT INFORMATION
  Report Type: 
  Country: None (occurrence: None)
  Receive Date: 20090422
  Receipt Date: 20090413
  Transmission Date: 20091009
  Serious: Yes (Other)
  Sender: FDA-Public Use
  Company Number: PHHY2009CA13969

PATIENT
  Sex: Male

DRUGS (4)
  1. CO-DIOVAN T32564+ [Suspect]
     Indication: RENAL FAILURE CHRONIC
     Dosage: 160/12.5 DAILY
     Route: 048
     Dates: start: 20080324, end: 20081028
  2. DIOVAN [Suspect]
     Indication: HYPERTENSION
     Dosage: 320 MG, UNK
     Route: 048
     Dates: start: 20090319
  3. ALLOPURINOL [Concomitant]
     Dosage: 200 MG, QD
  4. HYDROCHLOROTHIAZIDE [Concomitant]

REACTIONS (4)
  - BLOOD CREATININE INCREASED [None]
  - HIGH DENSITY LIPOPROTEIN DECREASED [None]
  - HYPERURICAEMIA [None]
  - URINE ALBUMIN/CREATININE RATIO INCREASED [None]
